FAERS Safety Report 14872652 (Version 1)
Quarter: 2018Q2

REPORT INFORMATION
  Report Type: Spontaneous
  Country: US (occurrence: US)
  Receive Date: 20180510
  Receipt Date: 20180510
  Transmission Date: 20180711
  Serious: No
  Sender: FDA-Public Use
  Company Number: US-ELI_LILLY_AND_COMPANY-US201805000565

PATIENT
  Age: 82 Year
  Sex: Female

DRUGS (2)
  1. BASAGLAR [Suspect]
     Active Substance: INSULIN GLARGINE
     Indication: PRODUCT USED FOR UNKNOWN INDICATION
     Dosage: 28 U, EACH MORNING
     Route: 065
     Dates: start: 201801
  2. BASAGLAR [Suspect]
     Active Substance: INSULIN GLARGINE
     Dosage: 28 U, EACH MORNING
     Route: 065
     Dates: start: 201801

REACTIONS (1)
  - Incorrect dose administered [Unknown]

NARRATIVE: CASE EVENT DATE: 20180428
